FAERS Safety Report 8596739-7 (Version None)
Quarter: 2012Q3

REPORT INFORMATION
  Report Type: 
  Country: None (occurrence: None)
  Receive Date: 20120802
  Receipt Date: 20120720
  Transmission Date: 20120928
  Serious: Yes (Hospitalization)
  Sender: FDA-Public Use
  Company Number: IMP_05946_2012

PATIENT
  Age: 49 Year

DRUGS (2)
  1. CHLOROQUINE PHOSPHATE [Suspect]
     Indication: CUTANEOUS LUPUS ERYTHEMATOSUS
     Dosage: DF
  2. CHLOROQUINE PHOSPHATE [Suspect]
     Indication: SYSTEMIC LUPUS ERYTHEMATOSUS
     Dosage: DF

REACTIONS (2)
  - TOXICITY TO VARIOUS AGENTS [None]
  - ATRIOVENTRICULAR BLOCK [None]
